FAERS Safety Report 23847379 (Version 2)
Quarter: 2024Q3

REPORT INFORMATION
  Report Type: Spontaneous
  Country: US (occurrence: US)
  Receive Date: 20240513
  Receipt Date: 20240712
  Transmission Date: 20241017
  Serious: Yes (Other)
  Sender: REGENERON
  Company Number: US-REGENERON PHARMACEUTICALS, INC.-2024-068581

PATIENT

DRUGS (3)
  1. EYLEA HD [Suspect]
     Active Substance: AFLIBERCEPT
     Indication: Product used for unknown indication
     Dosage: UNK, FORMULATION: HD VIAL
  2. EYLEA HD [Suspect]
     Active Substance: AFLIBERCEPT
     Dosage: UNK, 0.05 OR 0.06 ML, FORMULATION: HD VIAL
     Dates: start: 20240502
  3. EYLEA HD [Suspect]
     Active Substance: AFLIBERCEPT
     Dosage: UNK, FORMULATION: HD VIAL

REACTIONS (3)
  - Blindness transient [Recovered/Resolved]
  - Intraocular pressure increased [Recovered/Resolved]
  - Incorrect dose administered [Unknown]

NARRATIVE: CASE EVENT DATE: 20240101
